FAERS Safety Report 20030566 (Version 1)
Quarter: 2021Q4

REPORT INFORMATION
  Report Type: Report from Study
  Country: CA (occurrence: CA)
  Receive Date: 20211103
  Receipt Date: 20211103
  Transmission Date: 20220303
  Serious: Yes (Other)
  Sender: FDA-Public Use
  Company Number: CA-MYLANLABS-2021M1078437

PATIENT
  Sex: Male

DRUGS (8)
  1. SYNTHROID [Suspect]
     Active Substance: LEVOTHYROXINE SODIUM
     Indication: Product used for unknown indication
     Dosage: UNK
  2. SOMAVERT [Suspect]
     Active Substance: PEGVISOMANT
     Indication: Acromegaly
     Dosage: 30 MILLIGRAM, QD
     Route: 058
     Dates: start: 2007
  3. SOMAVERT [Suspect]
     Active Substance: PEGVISOMANT
     Dosage: 30 MILLIGRAM, QD
     Route: 058
     Dates: start: 2013, end: 2019
  4. SOMAVERT [Suspect]
     Active Substance: PEGVISOMANT
     Dosage: 20 MILLIGRAM, QD
     Route: 058
  5. SOMAVERT [Suspect]
     Active Substance: PEGVISOMANT
     Dosage: 20 MILLIGRAM, QD
     Route: 058
     Dates: start: 2019
  6. AMLODIPINE [Concomitant]
     Active Substance: AMLODIPINE BESYLATE
     Dosage: UNK
     Dates: end: 2021
  7. VALSARTAN [Concomitant]
     Active Substance: VALSARTAN
     Dosage: UNK
     Dates: end: 2021
  8. SYNTHROID [Concomitant]
     Active Substance: LEVOTHYROXINE SODIUM
     Dosage: UNK

REACTIONS (8)
  - Renal cancer [Unknown]
  - Aspartate aminotransferase increased [Unknown]
  - Alanine aminotransferase increased [Unknown]
  - Blood cholesterol increased [Unknown]
  - Hypertension [Unknown]
  - Blood growth hormone increased [Unknown]
  - Intentional product use issue [Unknown]
  - Product preparation error [Unknown]
